FAERS Safety Report 8050864-8 (Version None)
Quarter: 2012Q1

REPORT INFORMATION
  Report Type: 
  Country: None (occurrence: None)
  Receive Date: 20120117
  Receipt Date: 20120107
  Transmission Date: 20120608
  Serious: Yes (Death, Hospitalization)
  Sender: FDA-Public Use
  Company Number: PHHY2012CA002061

PATIENT
  Sex: Male
  Weight: 3 kg

DRUGS (4)
  1. NITRIC OXIDE [Concomitant]
  2. ALBUMIN (HUMAN) [Concomitant]
  3. FUROSEMIDE [Concomitant]
  4. OCTREOTIDE ACETATE [Suspect]
     Indication: PLEURAL EFFUSION
     Dosage: 20 UG/KG/HR

REACTIONS (11)
  - DEATH [None]
  - LYMPHANGIECTASIA [None]
  - ANURIA [None]
  - PLEURAL EFFUSION [None]
  - RENAL FAILURE ACUTE [None]
  - METABOLIC ACIDOSIS [None]
  - CONVULSION [None]
  - RESPIRATORY FAILURE [None]
  - CHYLOTHORAX [None]
  - HYPERKALAEMIA [None]
  - GENERALISED OEDEMA [None]
